APPROVED DRUG PRODUCT: FUROSEMIDE
Active Ingredient: FUROSEMIDE
Strength: 20MG
Dosage Form/Route: TABLET;ORAL
Application: N018369 | Product #001
Applicant: WATSON LABORATORIES INC
Approved: May 14, 1982 | RLD: No | RS: No | Type: DISCN